FAERS Safety Report 9023523 (Version 2)
Quarter: 2013Q1

REPORT INFORMATION
  Report Type: Spontaneous
  Country: DE (occurrence: DE)
  Receive Date: 20130121
  Receipt Date: 20130205
  Transmission Date: 20140127
  Serious: Yes (Other)
  Sender: FDA-Public Use
  Company Number: DE-AMGEN-DEUSP2013004064

PATIENT
  Age: 73 Year
  Sex: Female

DRUGS (11)
  1. ENBREL [Suspect]
     Indication: RHEUMATOID ARTHRITIS
     Dosage: 50 MG, WEEKLY, MONDAY EVENING
     Dates: start: 20080707
  2. ENBREL [Suspect]
     Dosage: UNK
  3. PREDNISOLONE [Concomitant]
     Dosage: 1 MG, 1X/DAY
  4. METAMIZOLE [Concomitant]
     Dosage: 500 MG, 2X/DAY
     Dates: start: 20090108
  5. CALCIUM SANDOZ D [Concomitant]
     Dosage: 1 DF, 1X/DAY
  6. METOHEXAL                          /00376902/ [Concomitant]
     Dosage: 23.75 MG, 1X/DAY
  7. RAMICLAIR [Concomitant]
     Dosage: 10 MG, 1X/DAY
  8. AMLODIPIN 1A FARMA [Concomitant]
     Dosage: 10 MG, 1X/DAY
  9. METEX                              /00113802/ [Concomitant]
     Dosage: 7.5 MG, WEEKLY, WEDNESDAY EVENING
  10. FOLIC ACID [Concomitant]
     Dosage: 20 MG, WEEKLY. THURSDAY MORNING
  11. DENOSUMAB [Concomitant]
     Dosage: 60 MG, EVERY 6 MONTHS
     Dates: start: 20120921

REACTIONS (3)
  - Spinal column stenosis [Not Recovered/Not Resolved]
  - Dysaesthesia [Unknown]
  - Fall [Unknown]
